FAERS Safety Report 5905442-0 (Version None)
Quarter: 2008Q4

REPORT INFORMATION
  Report Type: 
  Country: None (occurrence: None)
  Receive Date: 20081001
  Receipt Date: 20081001
  Transmission Date: 20090506
  Serious: Yes (Other)
  Sender: FDA-Public Use
  Company Number: None

PATIENT
  Sex: Female

DRUGS (1)
  1. GEODON [Suspect]
     Indication: BIPOLAR I DISORDER
     Dosage: 80MG BID PO
     Route: 048
     Dates: start: 20080301

REACTIONS (7)
  - AFFECTIVE DISORDER [None]
  - COLD SWEAT [None]
  - DRUG WITHDRAWAL SYNDROME [None]
  - DYSKINESIA [None]
  - FATIGUE [None]
  - HYPERHIDROSIS [None]
  - PARAESTHESIA [None]
